FAERS Safety Report 4832035-9 (Version None)
Quarter: 2005Q4

REPORT INFORMATION
  Report Type: 
  Country: None (occurrence: None)
  Receive Date: 20051116
  Receipt Date: 20051103
  Transmission Date: 20060501
  Serious: Yes (Other)
  Sender: FDA-Public Use
  Company Number: HQWYE688527SEP05

PATIENT
  Sex: Female

DRUGS (1)
  1. PREMARIN [Suspect]
     Indication: EMOTIONAL DISORDER
     Dosage: 0.625 TABLET 1X PER 1 DAY, ORAL
     Route: 048

REACTIONS (2)
  - AGITATION [None]
  - SUICIDAL IDEATION [None]
